FAERS Safety Report 5904226-7 (Version None)
Quarter: 2008Q4

REPORT INFORMATION
  Report Type: 
  Country: None (occurrence: None)
  Receive Date: 20081001
  Receipt Date: 20080929
  Transmission Date: 20090506
  Serious: Yes (Other)
  Sender: FDA-Public Use
  Company Number: CH-WYE-G02251708

PATIENT
  Age: 70 Year
  Sex: Male

DRUGS (1)
  1. EFFEXOR [Suspect]
     Indication: DEPRESSION
     Dosage: 375 MG, FREQUENCY UNKNOWN
     Dates: start: 20070101

REACTIONS (1)
  - POLYNEUROPATHY [None]
